FAERS Safety Report 9730922 (Version 2)
Quarter: 2013Q4

REPORT INFORMATION
  Report Type: Spontaneous
  Country: JP (occurrence: JP)
  Receive Date: 20131205
  Receipt Date: 20131220
  Transmission Date: 20140711
  Serious: Yes (Other)
  Sender: FDA-Public Use
  Company Number: JP-B.I. PHARMACEUTICALS,INC./RIDGEFIELD-2013-BI-40482NB

PATIENT
  Age: 67 Year
  Sex: Male

DRUGS (4)
  1. PRAZAXA [Suspect]
     Indication: ATRIAL FIBRILLATION
     Dosage: 300 MG
     Route: 048
     Dates: start: 20130708
  2. OLMETEC (OLMESARTAN MEDOXOMIL) [Concomitant]
     Indication: HYPERTENSION
     Dosage: 20 MG
     Route: 048
     Dates: start: 201106
  3. AMLODIN (AMLODIPINE BESILATE) [Concomitant]
     Indication: HYPERTENSION
     Dosage: 5 MG
     Route: 048
  4. MAINTATE (BISOPROLOL FUMARATE) [Concomitant]
     Indication: HYPERTENSION
     Dosage: 10 MG
     Route: 065
     Dates: start: 201106

REACTIONS (1)
  - Lung neoplasm malignant [Unknown]
